FAERS Safety Report 6145985-0 (Version None)
Quarter: 2009Q2

REPORT INFORMATION
  Report Type: 
  Country: None (occurrence: None)
  Receive Date: 20090406
  Receipt Date: 20090406
  Transmission Date: 20091009
  Serious: Yes (Life-Threatening)
  Sender: FDA-Public Use
  Company Number: None

PATIENT
  Sex: Female
  Weight: 68.0396 kg

DRUGS (2)
  1. ZOLOFT [Suspect]
     Dosage: 50 MG DAILY ORAL
     Route: 048
  2. AVAPRO [Suspect]
     Dosage: 150 MG DAILY ORAL
     Route: 048

REACTIONS (3)
  - APPARENT DEATH [None]
  - DYSPNOEA [None]
  - SWELLING [None]
